FAERS Safety Report 7902125-2 (Version None)
Quarter: 2011Q4

REPORT INFORMATION
  Report Type: 
  Country: None (occurrence: None)
  Receive Date: 20111108
  Receipt Date: 20111104
  Transmission Date: 20120403
  Serious: Yes (Other)
  Sender: FDA-Public Use
  Company Number: US-AMGEN-USASP2011046315

PATIENT
  Age: 61 Year
  Sex: Female
  Weight: 81.179 kg

DRUGS (4)
  1. NPLATE [Suspect]
     Indication: IDIOPATHIC THROMBOCYTOPENIC PURPURA
     Dosage: 250 MUG, QWK
     Route: 058
     Dates: start: 20101109
  2. ANALGESICS [Concomitant]
     Indication: PAIN
  3. ANTINEOPLASTIC AGENTS [Concomitant]
     Indication: CHEMOTHERAPY
  4. NPLATE [Suspect]
     Indication: PLATELET COUNT DECREASED

REACTIONS (3)
  - PAIN IN EXTREMITY [None]
  - MUSCULOSKELETAL PAIN [None]
  - PLATELET COUNT DECREASED [None]
